FAERS Safety Report 9278222 (Version 1)
Quarter: 2013Q2

REPORT INFORMATION
  Report Type: Spontaneous
  Country: US (occurrence: US)
  Receive Date: 20130508
  Receipt Date: 20130508
  Transmission Date: 20140414
  Serious: No
  Sender: FDA-Public Use
  Company Number: US-009507513-1305USA002034

PATIENT
  Age: 64 Year
  Sex: Male

DRUGS (3)
  1. ZOCOR [Suspect]
     Indication: BLOOD CHOLESTEROL INCREASED
     Dosage: 80 MG, ONCE DAILY IN THE EVENING
     Route: 048
     Dates: start: 200805, end: 201105
  2. ZOCOR [Suspect]
     Dosage: UNK
     Route: 048
  3. OXYCODONE [Suspect]
     Dosage: UNK

REACTIONS (4)
  - Dysphagia [Not Recovered/Not Resolved]
  - Headache [Not Recovered/Not Resolved]
  - Mental disorder [Unknown]
  - Crying [Unknown]
